FAERS Safety Report 7430464-0 (Version None)
Quarter: 2011Q2

REPORT INFORMATION
  Report Type: 
  Country: None (occurrence: None)
  Receive Date: 20110421
  Receipt Date: 20100614
  Transmission Date: 20111010
  Serious: No
  Sender: FDA-Public Use
  Company Number: US-ASTRAZENECA-2010SE27604

PATIENT
  Age: 70 Year
  Sex: Male

DRUGS (11)
  1. ZETIA [Suspect]
     Indication: CARDIAC DISORDER
     Route: 048
     Dates: start: 20060101
  2. FUROSEMIDE [Suspect]
     Route: 065
  3. POTASSIUM CHLORIDE [Suspect]
     Indication: MINERAL SUPPLEMENTATION
     Route: 048
     Dates: start: 20050101
  4. UROXATRAL [Suspect]
     Indication: PROSTATIC DISORDER
     Route: 048
     Dates: start: 20091101
  5. UROXATRAL [Suspect]
     Indication: URINE FLOW DECREASED
     Route: 048
     Dates: start: 20091101
  6. TAZTIA XT [Suspect]
     Indication: BLOOD PRESSURE ABNORMAL
     Route: 048
     Dates: start: 20050101
  7. ARICEPT [Suspect]
     Indication: AMNESIA
     Route: 065
  8. ALPRAZOLAM [Suspect]
     Indication: NERVOUS SYSTEM DISORDER
     Route: 048
     Dates: start: 19980101
  9. TOPROL-XL [Suspect]
     Indication: BLOOD PRESSURE ABNORMAL
     Route: 048
     Dates: start: 20050101
  10. QUINAPRIL [Suspect]
     Indication: BLOOD PRESSURE ABNORMAL
     Route: 048
     Dates: start: 20030101
  11. AVODART [Suspect]
     Indication: PROSTATE CANCER
     Route: 048
     Dates: start: 20070101

REACTIONS (11)
  - DYSURIA [None]
  - EYE IRRITATION [None]
  - DIZZINESS [None]
  - URINE FLOW DECREASED [None]
  - ERYTHEMA [None]
  - HEADACHE [None]
  - BLADDER DISCOMFORT [None]
  - OEDEMA PERIPHERAL [None]
  - NAUSEA [None]
  - DIARRHOEA [None]
  - ABDOMINAL DISCOMFORT [None]
